FAERS Safety Report 15365325 (Version 4)
Quarter: 2019Q3

REPORT INFORMATION
  Report Type: Spontaneous
  Country: US (occurrence: US)
  Receive Date: 20180910
  Receipt Date: 20190809
  Transmission Date: 20191004
  Serious: No
  Sender: FDA-Public Use
  Company Number: US-ASTRAZENECA-2018SE22653

PATIENT
  Age: 16470 Day
  Sex: Female

DRUGS (3)
  1. BYDUREON BCISE [Suspect]
     Active Substance: EXENATIDE
     Indication: PANCREATIC DISORDER
     Route: 058
     Dates: start: 2019
  2. BYDUREON BCISE [Suspect]
     Active Substance: EXENATIDE
     Indication: DIABETES MELLITUS
     Route: 058
     Dates: start: 2019
  3. BYDUREON [Suspect]
     Active Substance: EXENATIDE
     Dosage: 2.0MG UNKNOWN
     Route: 058

REACTIONS (7)
  - Incorrect disposal of product [Unknown]
  - Device leakage [Unknown]
  - Needle issue [Unknown]
  - Pain [Unknown]
  - Intentional device misuse [Unknown]
  - Incorrect dose administered [Unknown]
  - Product closure removal difficult [Unknown]

NARRATIVE: CASE EVENT DATE: 20190623
